FAERS Safety Report 25331701 (Version 3)
Quarter: 2025Q2

REPORT INFORMATION
  Report Type: Report from Study
  Country: CA (occurrence: CA)
  Receive Date: 20250519
  Receipt Date: 20250606
  Transmission Date: 20250716
  Serious: Yes (Other)
  Sender: NOVARTIS
  Company Number: CA-002147023-NVSC2025CA079299

PATIENT
  Age: 72 Year
  Sex: Male

DRUGS (3)
  1. LEQVIO [Suspect]
     Active Substance: INCLISIRAN SODIUM
     Indication: Hypercholesterolaemia
     Route: 058
     Dates: start: 20240515
  2. LEQVIO [Suspect]
     Active Substance: INCLISIRAN SODIUM
     Indication: Arteriosclerosis
     Route: 058
     Dates: start: 20240918
  3. LEQVIO [Suspect]
     Active Substance: INCLISIRAN SODIUM
     Route: 058
     Dates: start: 20250515

REACTIONS (10)
  - Angina pectoris [Recovering/Resolving]
  - Adrenal cyst [Not Recovered/Not Resolved]
  - Chest pain [Recovering/Resolving]
  - Dyspnoea [Recovering/Resolving]
  - Chest discomfort [Unknown]
  - Myositis [Unknown]
  - Fatigue [Unknown]
  - Asthenia [Unknown]
  - Nausea [Unknown]
  - Abdominal pain [Unknown]

NARRATIVE: CASE EVENT DATE: 20250424
